FAERS Safety Report 17801972 (Version 1)
Quarter: 2020Q2

REPORT INFORMATION
  Report Type: Spontaneous
  Country: US (occurrence: US)
  Receive Date: 20200518
  Receipt Date: 20200518
  Transmission Date: 20200714
  Serious: No
  Sender: FDA-Public Use
  Company Number: None

PATIENT
  Age: 55 Year
  Sex: Male
  Weight: 84.6 kg

DRUGS (4)
  1. AIMOVIG [Suspect]
     Active Substance: ERENUMAB-AOOE
     Indication: MIGRAINE
     Dosage: ?          OTHER FREQUENCY:4 WEEKS;?
     Route: 058
     Dates: start: 20200309, end: 20200502
  2. VERAPAMIL ER 240 MG [Concomitant]
  3. ESOMEPRAZOLE. [Concomitant]
     Active Substance: ESOMEPRAZOLE MAGNESIUM
  4. ASA [Concomitant]
     Active Substance: ASPIRIN

REACTIONS (1)
  - Headache [None]

NARRATIVE: CASE EVENT DATE: 20200309
